FAERS Safety Report 6264708-8 (Version None)
Quarter: 2009Q3

REPORT INFORMATION
  Report Type: 
  Country: None (occurrence: None)
  Receive Date: 20090710
  Receipt Date: 20090629
  Transmission Date: 20100115
  Serious: Yes (Hospitalization)
  Sender: FDA-Public Use
  Company Number: IT-PFIZER INC-2009217441

PATIENT
  Age: 70 Year

DRUGS (2)
  1. LYRICA [Suspect]
     Indication: BONE PAIN
     Dosage: 300 MG, 1X/DAY
     Route: 048
     Dates: start: 20090102, end: 20090513
  2. GABAPENTIN [Suspect]
     Indication: BONE PAIN
     Dosage: 1800 MG, 1X/DAY
     Route: 048
     Dates: start: 20090303, end: 20090513

REACTIONS (1)
  - HEPATITIS ACUTE [None]
